FAERS Safety Report 5848669-9 (Version None)
Quarter: 2008Q3

REPORT INFORMATION
  Report Type: 
  Country: None (occurrence: None)
  Receive Date: 20080814
  Receipt Date: 20080804
  Transmission Date: 20090109
  Serious: Yes (Hospitalization, Other)
  Sender: FDA-Public Use
  Company Number: 15347

PATIENT
  Age: 36 Year
  Sex: Male
  Weight: 92.9874 kg

DRUGS (5)
  1. MORPHINE SULFATE [Suspect]
     Indication: HAEMOCHROMATOSIS
     Dosage: 60 MG TID ORALLY
     Route: 048
     Dates: start: 20070101, end: 20080415
  2. LISINOPRIL [Concomitant]
  3. PROZAC [Concomitant]
  4. VICODIN [Concomitant]
  5. UNSPECIFIED VITAMINS [Concomitant]

REACTIONS (6)
  - BLOOD PRESSURE DECREASED [None]
  - DYSARTHRIA [None]
  - INCOHERENT [None]
  - LOSS OF CONSCIOUSNESS [None]
  - MEMORY IMPAIRMENT [None]
  - VOMITING [None]
